FAERS Safety Report 10574696 (Version 1)
Quarter: 2014Q4

REPORT INFORMATION
  Report Type: Spontaneous
  Country: AT (occurrence: AT)
  Receive Date: 20141110
  Receipt Date: 20141110
  Transmission Date: 20150529
  Serious: Yes (Other)
  Sender: FDA-Public Use
  Company Number: AT-PFIZER INC-2014305578

PATIENT
  Age: 74 Year
  Sex: Male

DRUGS (1)
  1. NEURONTIN [Suspect]
     Active Substance: GABAPENTIN
     Dosage: UNK
     Route: 048
     Dates: start: 201407, end: 201410

REACTIONS (7)
  - Dry throat [Unknown]
  - Myalgia [Unknown]
  - Laryngeal oedema [Unknown]
  - Hyperhidrosis [Unknown]
  - Localised oedema [Unknown]
  - Weight decreased [Unknown]
  - Gait disturbance [Unknown]
